FAERS Safety Report 5261573-2 (Version None)
Quarter: 2007Q1

REPORT INFORMATION
  Report Type: 
  Country: None (occurrence: None)
  Receive Date: 20061218
  Receipt Date: 20061009
  Transmission Date: 20070707
  Serious: No
  Sender: FDA-Public Use
  Company Number: US200610000250

PATIENT
  Age: 49 Year
  Sex: Male

DRUGS (3)
  1. CIALIS [Suspect]
     Indication: BLOOD TESTOSTERONE DECREASED
     Dosage: 20 MG
     Dates: start: 20050101, end: 20060916
  2. TRICOR [Concomitant]
  3. ZETIA [Concomitant]

REACTIONS (3)
  - DIZZINESS POSTURAL [None]
  - HEADACHE [None]
  - NASAL CONGESTION [None]
